FAERS Safety Report 11238103 (Version 1)
Quarter: 2015Q3

REPORT INFORMATION
  Report Type: Spontaneous
  Country: FR (occurrence: FR)
  Receive Date: 20150703
  Receipt Date: 20150703
  Transmission Date: 20151125
  Serious: Yes (Hospitalization)
  Sender: FDA-Public Use
  Company Number: FR-ASTRAZENECA-2015SE64383

PATIENT
  Age: 0 Year
  Sex: Female
  Weight: 3.3 kg

DRUGS (4)
  1. INEXIUM [Suspect]
     Active Substance: ESOMEPRAZOLE
     Indication: GASTROOESOPHAGEAL REFLUX DISEASE
     Route: 048
     Dates: start: 201506
  2. GAVISCON [Concomitant]
     Active Substance: ALUMINUM HYDROXIDE\MAGNESIUM CARBONATE
  3. INEXIUM [Suspect]
     Active Substance: ESOMEPRAZOLE
     Indication: GASTROOESOPHAGEAL REFLUX DISEASE
     Route: 048
     Dates: start: 201503, end: 201505
  4. UVESTEROL [Concomitant]

REACTIONS (4)
  - Haematochezia [Recovered/Resolved]
  - Drug administered to patient of inappropriate age [Not Recovered/Not Resolved]
  - Abdominal pain [Unknown]
  - Off label use [Not Recovered/Not Resolved]

NARRATIVE: CASE EVENT DATE: 201503
